FAERS Safety Report 23522448 (Version 1)
Quarter: 2024Q1

REPORT INFORMATION
  Report Type: Spontaneous
  Country: US (occurrence: None)
  Receive Date: 20240213
  Receipt Date: 20240213
  Transmission Date: 20240410
  Serious: No
  Sender: FDA-Public Use
  Company Number: None

PATIENT
  Age: 39 Year
  Sex: Female
  Weight: 118.57 kg

DRUGS (14)
  1. SAXENDA [Suspect]
     Active Substance: LIRAGLUTIDE
     Indication: Obesity
     Route: 042
     Dates: start: 20230301, end: 20230615
  2. MONTELUKAST [Concomitant]
     Active Substance: MONTELUKAST SODIUM
  3. NAC [Concomitant]
  4. VITAMIN D NOS [Concomitant]
     Active Substance: VITAMIN D NOS
  5. LITHIUM ORATATE [Concomitant]
  6. VITAMINS NOS [Concomitant]
     Active Substance: VITAMINS
  7. PEPCID [Concomitant]
     Active Substance: FAMOTIDINE
  8. ALBUTEROL [Concomitant]
     Active Substance: ALBUTEROL
  9. LEVOTHYROXINE [Concomitant]
     Active Substance: LEVOTHYROXINE\LEVOTHYROXINE SODIUM
  10. VENTOLIN [Concomitant]
     Active Substance: ALBUTEROL SULFATE
  11. MAGNESIUM GLYCINATE [Concomitant]
  12. LOSARTAN [Concomitant]
     Active Substance: LOSARTAN
  13. PRASOSIN [Concomitant]
  14. VENLAFAXINE HYDROCHLORIDE [Concomitant]
     Active Substance: VENLAFAXINE HYDROCHLORIDE

REACTIONS (1)
  - Suicidal ideation [None]

NARRATIVE: CASE EVENT DATE: 20230615
